FAERS Safety Report 9470712 (Version 2)
Quarter: 2013Q3

REPORT INFORMATION
  Report Type: Spontaneous
  Country: US (occurrence: US)
  Receive Date: 20130822
  Receipt Date: 20130909
  Transmission Date: 20140515
  Serious: No
  Sender: FDA-Public Use
  Company Number: US-PFIZER INC-2013241796

PATIENT
  Sex: 0

DRUGS (3)
  1. NEURONTIN [Suspect]
     Indication: PAIN
     Dosage: 1200 MG, 2X/WEEK
  2. NEURONTIN [Suspect]
     Indication: HEPATIC PAIN
  3. NEURONTIN [Suspect]
     Indication: GASTROINTESTINAL PAIN

REACTIONS (7)
  - Off label use [Unknown]
  - Psychomotor hyperactivity [Unknown]
  - Dizziness [Unknown]
  - Feeling abnormal [Unknown]
  - Drug ineffective [Unknown]
  - Drug tolerance [Unknown]
  - Therapeutic response unexpected [Unknown]
